FAERS Safety Report 16474626 (Version 1)
Quarter: 2019Q2

REPORT INFORMATION
  Report Type: Spontaneous
  Country: US (occurrence: US)
  Receive Date: 20190515
  Receipt Date: 20190515
  Transmission Date: 20190711
  Serious: Yes (Other)
  Sender: FDA-Public Use
  Company Number: None

PATIENT
  Age: 45 Year
  Sex: Female
  Weight: 68.04 kg

DRUGS (1)
  1. PROLIA [Suspect]
     Active Substance: DENOSUMAB
     Indication: BREAST CANCER
     Dosage: ?          OTHER ROUTE:INJECTION?

REACTIONS (3)
  - Groin pain [None]
  - Hip arthroplasty [None]
  - Arthralgia [None]

NARRATIVE: CASE EVENT DATE: 201708
